FAERS Safety Report 5122915-1 (Version None)
Quarter: 2006Q4

REPORT INFORMATION
  Report Type: 
  Country: None (occurrence: None)
  Receive Date: 20061005
  Receipt Date: 20060926
  Transmission Date: 20070319
  Serious: Yes (Other)
  Sender: FDA-Public Use
  Company Number: US-2006-025901

PATIENT
  Age: 23 Year
  Sex: Female

DRUGS (1)
  1. YASMIN [Suspect]
     Indication: ACNE
     Dosage: 1 TAB(S), 1X/DAY, ORAL
     Route: 048

REACTIONS (2)
  - ARRHYTHMIA [None]
  - TACHYCARDIA [None]
